FAERS Safety Report 8809336 (Version 2)
Quarter: 2012Q4

REPORT INFORMATION
  Report Type: 
  Country: JP (occurrence: JP)
  Receive Date: 20120926
  Receipt Date: 20121004
  Transmission Date: 20130627
  Serious: No
  Sender: FDA-Public Use
  Company Number: JP-JNJFOC-20120907711

PATIENT
  Sex: Female

DRUGS (1)
  1. DUROTEP MT [Suspect]
     Indication: CANCER PAIN
     Dosage: eightyfive patches for about a month
     Route: 062
     Dates: start: 201209

REACTIONS (2)
  - Overdose [Unknown]
  - Drug prescribing error [Unknown]
